FAERS Safety Report 11939649 (Version 1)
Quarter: 2016Q1

REPORT INFORMATION
  Report Type: Spontaneous
  Country: IN (occurrence: IN)
  Receive Date: 20160122
  Receipt Date: 20160122
  Transmission Date: 20160526
  Serious: Yes (Other)
  Sender: FDA-Public Use
  Company Number: IN-IGI LABORATORIES, INC.-1046775

PATIENT
  Age: 32 Month
  Sex: Male

DRUGS (1)
  1. ZANTAC [Suspect]
     Active Substance: RANITIDINE HYDROCHLORIDE
     Indication: PROPHYLAXIS
     Route: 040

REACTIONS (4)
  - Cardiac arrest [Recovered/Resolved]
  - Encephalopathy [Unknown]
  - Brain hypoxia [Unknown]
  - Hepatic function abnormal [Unknown]
